FAERS Safety Report 21370231 (Version 1)
Quarter: 2022Q3

REPORT INFORMATION
  Report Type: Spontaneous
  Country: DE (occurrence: DE)
  Receive Date: 20220923
  Receipt Date: 20220923
  Transmission Date: 20221027
  Serious: Yes (Death, Hospitalization)
  Sender: FDA-Public Use
  Company Number: DE-ADRED-06897-01

PATIENT
  Age: 86 Year
  Sex: Female

DRUGS (9)
  1. METOPROLOL [Suspect]
     Active Substance: METOPROLOL
     Indication: Product used for unknown indication
     Dosage: 100 MG, 0-0-1-0, TABLETTEN (100 MG, 0-0-1-0, TABLETS)
     Route: 048
  2. FUROSEMIDE [Suspect]
     Active Substance: FUROSEMIDE
     Indication: Product used for unknown indication
     Dosage: 60 MG, 1-0-0-0, RETARD-KAPSELN (60 MG, 1-0-0-0, SUSTAINED-RELEASE CAPSULES)
     Route: 048
  3. TRAMADOL [Suspect]
     Active Substance: TRAMADOL
     Indication: Product used for unknown indication
     Dosage: 150 MG, BEDARF, RETARD-TABLETTEN (150 MG, REQUIREMENT, SUSTAINED-RELEASE TABLETS)
     Route: 048
  4. RAMIPRIL [Suspect]
     Active Substance: RAMIPRIL
     Indication: Product used for unknown indication
     Dosage: 5 MG, 1-0-0-0, TABLETTEN (5 MG, 1-0-0-0, TABLETS)
     Route: 048
  5. DOXAZOSIN [Suspect]
     Active Substance: DOXAZOSIN MESYLATE
     Indication: Product used for unknown indication
     Dosage: 8 MG, 1-0-0-0, TABLETTEN (8 MG, 1-0-0-0, TABLETS)
     Route: 048
  6. FELODIPINE [Suspect]
     Active Substance: FELODIPINE
     Indication: Product used for unknown indication
     Dosage: 5 MG, 1-0-0-0, RETARD-TABLETTEN (5 MG, 1-0-0-0, SUSTAINED-RELEASE TABLETS)
     Route: 048
  7. ASPIRIN [Concomitant]
     Active Substance: ASPIRIN
     Indication: Product used for unknown indication
     Dosage: 100 MG, 1-0-0-0, TABLETTEN (100 MG, 1-0-0-0, TABLETS)
     Route: 048
  8. BENSERAZIDE\LEVODOPA [Concomitant]
     Active Substance: BENSERAZIDE\LEVODOPA
     Indication: Product used for unknown indication
     Dosage: 12.5|50 MG, 1-0-0-0, TABLETTEN
     Route: 048
  9. GINKGO [Concomitant]
     Active Substance: GINKGO
     Indication: Product used for unknown indication
     Dosage: 120 MG, 1-0-1-0, TABLETTEN (120 MG, 1-0-1-0, TABLETS)
     Route: 048

REACTIONS (4)
  - Fall [Fatal]
  - Disorientation [Fatal]
  - Dehydration [Fatal]
  - Hypotension [Fatal]
